FAERS Safety Report 5271224-9 (Version None)
Quarter: 2007Q1

REPORT INFORMATION
  Report Type: 
  Country: None (occurrence: None)
  Receive Date: 20070315
  Receipt Date: 20070302
  Transmission Date: 20070707
  Serious: Yes (Hospitalization)
  Sender: FDA-Public Use
  Company Number: 2007S1000060

PATIENT
  Sex: Female

DRUGS (1)
  1. ACITRETIN [Suspect]
     Indication: DERMATITIS ATOPIC
     Dosage: PO
     Route: 048

REACTIONS (2)
  - CONDITION AGGRAVATED [None]
  - DERMATITIS ATOPIC [None]
